FAERS Safety Report 6554636-2 (Version None)
Quarter: 2010Q1

REPORT INFORMATION
  Report Type: 
  Country: None (occurrence: None)
  Receive Date: 20100127
  Receipt Date: 20100115
  Transmission Date: 20100710
  Serious: Yes (Life-Threatening)
  Sender: FDA-Public Use
  Company Number: GB-PFIZER INC-2010005711

PATIENT
  Age: 33 Year
  Sex: Male

DRUGS (4)
  1. METHYLPREDNISOLONE AND METHYLPREDNISOLONE ACETATE AND METHYLPREDNISOLO [Suspect]
     Dosage: 1 G, UNK
     Route: 042
     Dates: start: 20091222, end: 20091222
  2. MOVICOL [Concomitant]
     Dosage: UNK
     Route: 048
  3. NALTREXONE [Concomitant]
     Indication: MULTIPLE SCLEROSIS
     Dosage: 3 MG, UNK
     Route: 048
     Dates: start: 20091210
  4. VIAGRA [Concomitant]
     Dosage: UNK
     Route: 048

REACTIONS (4)
  - EYELID OEDEMA [None]
  - PRURITUS [None]
  - URTICARIA [None]
  - WHEEZING [None]
